FAERS Safety Report 4655386-X (Version None)
Quarter: 2005Q2

REPORT INFORMATION
  Report Type: 
  Country: None (occurrence: None)
  Receive Date: 20050505
  Receipt Date: 20050429
  Transmission Date: 20051028
  Serious: Yes (Other)
  Sender: FDA-Public Use
  Company Number: USA-2004-0018134

PATIENT
  Age: 26 Year
  Sex: Male
  Weight: 73.5 kg

DRUGS (7)
  1. OXYCONTIN [Suspect]
     Dosage: MG
  2. PERCOCET [Suspect]
  3. FENTANYL [Suspect]
  4. METOCLOPRAMIDE [Suspect]
  5. PAPAVERINE (PAPAVERINE) [Suspect]
  6. LORAZEPAM [Suspect]
  7. FLUCONAZOLE [Suspect]

REACTIONS (5)
  - ACCIDENTAL DEATH [None]
  - ANOXIC ENCEPHALOPATHY [None]
  - BLOOD SODIUM INCREASED [None]
  - DEPRESSED LEVEL OF CONSCIOUSNESS [None]
  - POLYSUBSTANCE ABUSE [None]
